FAERS Safety Report 12968184 (Version 1)
Quarter: 2016Q4

REPORT INFORMATION
  Report Type: Spontaneous
  Country: US (occurrence: US)
  Receive Date: 20161123
  Receipt Date: 20161123
  Transmission Date: 20170207
  Serious: No
  Sender: FDA-Public Use
  Company Number: US-APOTEX-2016AP006940

PATIENT
  Sex: Male

DRUGS (1)
  1. ACYCLOVIR. [Suspect]
     Active Substance: ACYCLOVIR
     Indication: HERPES VIRUS INFECTION
     Dosage: 5 TIMES A DAY
     Route: 065

REACTIONS (4)
  - Product coating issue [Not Recovered/Not Resolved]
  - Foreign body [Not Recovered/Not Resolved]
  - Off label use [Not Recovered/Not Resolved]
  - Product difficult to swallow [Not Recovered/Not Resolved]
